FAERS Safety Report 10072242 (Version 2)
Quarter: 2014Q2

REPORT INFORMATION
  Report Type: Spontaneous
  Country: CH (occurrence: CH)
  Receive Date: 20140411
  Receipt Date: 20140421
  Transmission Date: 20141212
  Serious: Yes (Other)
  Sender: FDA-Public Use
  Company Number: CH-SA-2014SA044861

PATIENT
  Sex: 0

DRUGS (1)
  1. BCG FOR IMMUNOTHERAPY [Suspect]
     Indication: PRODUCT USED FOR UNKNOWN INDICATION
     Route: 065
     Dates: start: 201106, end: 20120220

REACTIONS (4)
  - Granuloma [Not Recovered/Not Resolved]
  - Soft tissue disorder [Unknown]
  - Orchitis [Unknown]
  - Bovine tuberculosis [Unknown]
